FAERS Safety Report 5193775-8 (Version None)
Quarter: 2006Q4

REPORT INFORMATION
  Report Type: 
  Country: None (occurrence: None)
  Receive Date: 20061221
  Receipt Date: 20061214
  Transmission Date: 20070319
  Serious: Yes (Death)
  Sender: FDA-Public Use
  Company Number: 2006US002839

PATIENT
  Age: 41 Year
  Sex: Female

DRUGS (2)
  1. AMBISOME [Suspect]
     Indication: MENINGITIS CRYPTOCOCCAL
     Dosage: 5 MG/KG, UID/QD
  2. AMPHOTERICIN B [Suspect]

REACTIONS (6)
  - ANAEMIA [None]
  - ARRHYTHMIA [None]
  - DRUG INEFFECTIVE [None]
  - OVERDOSE [None]
  - RENAL FAILURE ACUTE [None]
  - WRONG DRUG ADMINISTERED [None]
